FAERS Safety Report 16746526 (Version 1)
Quarter: 2019Q3

REPORT INFORMATION
  Report Type: Report from Study
  Country: DE (occurrence: DE)
  Receive Date: 20190827
  Receipt Date: 20190827
  Transmission Date: 20191005
  Serious: Yes (Death, Hospitalization, Congenital Anomaly)
  Sender: FDA-Public Use
  Company Number: DE-TEVA-2019-DE-1096981

PATIENT
  Age: 49 Year
  Sex: Female
  Weight: 77 kg

DRUGS (21)
  1. CANDESARTAN. [Concomitant]
     Active Substance: CANDESARTAN
     Indication: HYPERTENSION
     Dosage: 5 MG
     Route: 048
     Dates: start: 20140923
  2. PREDNISOLON [PREDNISOLONE] [Concomitant]
     Active Substance: PREDNISOLONE
     Indication: SYSTEMIC LUPUS ERYTHEMATOSUS
     Dosage: 5 MG
     Route: 048
  3. BEVACIZUMAB. [Suspect]
     Active Substance: BEVACIZUMAB
     Indication: OVARIAN CANCER
     Dosage: TEMPORARILY INTERRUPTED ON AN UNSPECIFIED DATE, 1155 MG
     Route: 042
     Dates: start: 20140107, end: 20140107
  4. BEVACIZUMAB. [Suspect]
     Active Substance: BEVACIZUMAB
     Dosage: 1140 MG
     Route: 042
     Dates: start: 20140930, end: 20140930
  5. PACLITAXEL. [Suspect]
     Active Substance: PACLITAXEL
     Indication: OVARIAN CANCER
     Dosage: 322 MG
     Route: 042
     Dates: start: 20131216, end: 20131216
  6. PACLITAXEL. [Suspect]
     Active Substance: PACLITAXEL
     Dosage: 318.5 MG
     Route: 042
     Dates: start: 20140107, end: 20140311
  7. CARBOPLATIN. [Suspect]
     Active Substance: CARBOPLATIN
     Dosage: 460 MG
     Route: 042
     Dates: start: 20140311, end: 20140311
  8. PACLITAXEL. [Suspect]
     Active Substance: PACLITAXEL
     Dosage: 318.5 MG
     Route: 042
     Dates: start: 20140128, end: 20140128
  9. BISOPROLOL [Concomitant]
     Active Substance: BISOPROLOL
     Indication: HYPERTENSION
     Route: 048
  10. AMLODIPINE [Concomitant]
     Active Substance: AMLODIPINE BESYLATE
     Indication: HYPERTENSION
     Route: 048
  11. PACLITAXEL. [Suspect]
     Active Substance: PACLITAXEL
     Dosage: 315 MG
     Route: 042
     Dates: start: 20140401, end: 20140401
  12. BEVACIZUMAB. [Suspect]
     Active Substance: BEVACIZUMAB
     Dosage: 1125 MG, RE-INTRODUCED
     Route: 042
     Dates: start: 20140610
  13. CARBOPLATIN. [Suspect]
     Active Substance: CARBOPLATIN
     Dosage: 403 MG
     Route: 042
     Dates: start: 20140128, end: 20140128
  14. CARBOPLATIN. [Suspect]
     Active Substance: CARBOPLATIN
     Dosage: 400 MG
     Route: 042
     Dates: start: 20140107, end: 20140107
  15. XERISTAR [Concomitant]
     Active Substance: DULOXETINE HYDROCHLORIDE
     Indication: DEPRESSION
     Dosage: 30 MG
     Route: 048
     Dates: start: 201405
  16. PACLITAXEL. [Suspect]
     Active Substance: PACLITAXEL
     Dosage: 318.5 MG
     Route: 042
     Dates: start: 20140218, end: 20140218
  17. CARBOPLATIN. [Suspect]
     Active Substance: CARBOPLATIN
     Indication: OVARIAN CANCER
     Dosage: 362 MG
     Route: 042
     Dates: start: 20131216, end: 20131216
  18. PACLITAXEL. [Suspect]
     Active Substance: PACLITAXEL
     Dosage: 318.5 MG
     Route: 042
     Dates: start: 20140311, end: 20140311
  19. BEVACIZUMAB. [Suspect]
     Active Substance: BEVACIZUMAB
     Dosage: 1140 MG
     Route: 042
     Dates: start: 20140401, end: 20140401
  20. CARBOPLATIN. [Suspect]
     Active Substance: CARBOPLATIN
     Dosage: 456 MG
     Route: 042
     Dates: start: 20140218, end: 20140218
  21. CARBOPLATIN. [Suspect]
     Active Substance: CARBOPLATIN
     Dosage: 538 MG
     Route: 042
     Dates: start: 20140401, end: 20140401

REACTIONS (3)
  - Death [Fatal]
  - Ileus [Recovered/Resolved]
  - Incarcerated incisional hernia [Recovered/Resolved]

NARRATIVE: CASE EVENT DATE: 20140422
